FAERS Safety Report 6114810-6 (Version None)
Quarter: 2009Q1

REPORT INFORMATION
  Report Type: 
  Country: None (occurrence: None)
  Receive Date: 20090313
  Receipt Date: 20090303
  Transmission Date: 20090719
  Serious: Yes (Death)
  Sender: FDA-Public Use
  Company Number: US-WYE-H08430109

PATIENT
  Age: 60 Year
  Sex: Female
  Weight: 61.29 kg

DRUGS (1)
  1. PREMPRO [Suspect]
     Indication: HORMONE THERAPY
     Dosage: UNSPECIFIED DOSAGE DAILY
     Route: 048
     Dates: start: 20030101, end: 20040304

REACTIONS (1)
  - MYOCARDIAL INFARCTION [None]
